FAERS Safety Report 25314904 (Version 2)
Quarter: 2025Q3

REPORT INFORMATION
  Report Type: Spontaneous
  Country: US (occurrence: US)
  Receive Date: 20250514
  Receipt Date: 20250731
  Transmission Date: 20251020
  Serious: No
  Sender: SANOFI AVENTIS
  Company Number: US-SA-2025SA109958

PATIENT
  Age: 45 Year
  Sex: Female

DRUGS (5)
  1. DUPIXENT [Suspect]
     Active Substance: DUPILUMAB
     Indication: Nasal polyps
     Dosage: 300 MG, QOW
     Route: 058
     Dates: start: 20240712
  2. ALBUTEROL SULFATE [Concomitant]
     Active Substance: ALBUTEROL SULFATE
  3. EPINEPHRINE [Concomitant]
     Active Substance: EPINEPHRINE
  4. MOUNJARO [Concomitant]
     Active Substance: TIRZEPATIDE
  5. ESCITALOPRAM [Concomitant]
     Active Substance: ESCITALOPRAM OXALATE

REACTIONS (3)
  - Asthma [Unknown]
  - Impaired quality of life [Unknown]
  - Drug ineffective [Unknown]
